FAERS Safety Report 6043845-7 (Version None)
Quarter: 2009Q1

REPORT INFORMATION
  Report Type: 
  Country: None (occurrence: None)
  Receive Date: 20090120
  Receipt Date: 20090111
  Transmission Date: 20090719
  Serious: Yes (Other)
  Sender: FDA-Public Use
  Company Number: US-AMGEN-QUU327951

PATIENT
  Sex: Female

DRUGS (1)
  1. ENBREL [Suspect]
     Indication: RHEUMATOID ARTHRITIS
     Dates: start: 20011201

REACTIONS (6)
  - DRUG INEFFECTIVE [None]
  - HIP ARTHROPLASTY [None]
  - IMPAIRED HEALING [None]
  - SCAR [None]
  - SKIN LESION [None]
  - WOUND DEHISCENCE [None]
